FAERS Safety Report 6232003-9 (Version None)
Quarter: 2009Q2

REPORT INFORMATION
  Report Type: 
  Country: None (occurrence: None)
  Receive Date: 20090616
  Receipt Date: 20090609
  Transmission Date: 20091009
  Serious: Yes (Hospitalization, Other)
  Sender: FDA-Public Use
  Company Number: GB-GILEAD-2009-0022512

PATIENT
  Age: 19 Year

DRUGS (1)
  1. TRUVADA [Suspect]
     Indication: PROPHYLAXIS AGAINST HIV INFECTION
     Route: 048
     Dates: start: 20090301

REACTIONS (2)
  - ABNORMAL BEHAVIOUR [None]
  - PSYCHOTIC DISORDER [None]
